FAERS Safety Report 25765857 (Version 1)
Quarter: 2025Q3

REPORT INFORMATION
  Report Type: Spontaneous
  Country: US (occurrence: US)
  Receive Date: 20250905
  Receipt Date: 20250905
  Transmission Date: 20251020
  Serious: No
  Sender: DOMPE FARMACEUTICI
  Company Number: US-FARMAPROD-202407-2546

PATIENT
  Sex: Male

DRUGS (18)
  1. OXERVATE [Suspect]
     Active Substance: CENEGERMIN-BKBJ
     Indication: Neurotrophic keratopathy
     Route: 047
     Dates: start: 20240702, end: 20240710
  2. VITAMINS [Concomitant]
     Active Substance: VITAMINS
  3. VITAMIN B COMPLEX [Concomitant]
     Active Substance: CYANOCOBALAMIN\DEXPANTHENOL\NIACINAMIDE\PYRIDOXINE HYDROCHLORIDE\RIBOFLAVIN 5^-PHOSPHATE SODIUM\THIA
  4. REFRESH RELIEVA [Concomitant]
     Active Substance: CARBOXYMETHYLCELLULOSE SODIUM\GLYCERIN
  5. PROSCAR [Concomitant]
     Active Substance: FINASTERIDE
  6. TOLTERODINE TARTRATE [Concomitant]
     Active Substance: TOLTERODINE TARTRATE
  7. FINASTERIDE [Concomitant]
     Active Substance: FINASTERIDE
  8. ATENOLOL [Concomitant]
     Active Substance: ATENOLOL
  9. TAMSULOSIN HYDROCHLORIDE [Concomitant]
     Active Substance: TAMSULOSIN HYDROCHLORIDE
  10. ABILIFY [Concomitant]
     Active Substance: ARIPIPRAZOLE
  11. GABAPENTIN [Concomitant]
     Active Substance: GABAPENTIN
  12. ACYCLOVIR [Concomitant]
     Active Substance: ACYCLOVIR
  13. LIPITOR [Concomitant]
     Active Substance: ATORVASTATIN CALCIUM
  14. DILTIAZEM [Concomitant]
     Active Substance: DILTIAZEM
  15. PROTONIX [Concomitant]
     Active Substance: PANTOPRAZOLE SODIUM
  16. DETROL LA [Concomitant]
     Active Substance: TOLTERODINE TARTRATE
  17. VISTARIL [Concomitant]
     Active Substance: HYDROXYZINE PAMOATE
  18. ERYTHROMYCIN [Concomitant]
     Active Substance: ERYTHROMYCIN

REACTIONS (4)
  - Eye pain [Recovered/Resolved]
  - Ocular hyperaemia [Recovered/Resolved]
  - Eye discharge [Unknown]
  - Iris discolouration [Recovered/Resolved]
